FAERS Safety Report 4502332-5 (Version None)
Quarter: 2004Q4

REPORT INFORMATION
  Report Type: 
  Country: None (occurrence: None)
  Receive Date: 20041116
  Receipt Date: 20041109
  Transmission Date: 20050328
  Serious: Yes (Other)
  Sender: FDA-Public Use
  Company Number: CH-GLAXOSMITHKLINE-B0356981A

PATIENT
  Age: 70 Year
  Sex: Male

DRUGS (2)
  1. AVODART [Suspect]
     Dosage: .5MG PER DAY
     Route: 048
     Dates: start: 20040630
  2. XATRAL [Suspect]
     Dosage: 10MG PER DAY
     Route: 048
     Dates: start: 20040630, end: 20040828

REACTIONS (4)
  - PRURITUS [None]
  - RASH MACULAR [None]
  - SKIN REACTION [None]
  - URTICARIA [None]
